FAERS Safety Report 21968634 (Version 1)
Quarter: 2023Q1

REPORT INFORMATION
  Report Type: Spontaneous
  Country: US (occurrence: None)
  Receive Date: 20230207
  Receipt Date: 20230207
  Transmission Date: 20230417
  Serious: No
  Sender: FDA-Public Use
  Company Number: None

PATIENT
  Age: 60 Year
  Sex: Female
  Weight: 57.42 kg

DRUGS (12)
  1. LENVIMA [Suspect]
     Active Substance: LENVATINIB
     Indication: Endometrial cancer
     Dosage: FREQUENCY : DAILY;?
     Route: 048
     Dates: start: 20230205
  2. KEYTRUDA [Concomitant]
     Active Substance: PEMBROLIZUMAB
  3. GLIPIZIDE [Concomitant]
     Active Substance: GLIPIZIDE
  4. MEGESTROL [Concomitant]
     Active Substance: MEGESTROL
  5. METFORMIN [Concomitant]
     Active Substance: METFORMIN HYDROCHLORIDE
  6. OLMESARTAN [Concomitant]
     Active Substance: OLMESARTAN
  7. ONDANSETRON [Concomitant]
     Active Substance: ONDANSETRON
  8. PRAVASTATIN [Concomitant]
     Active Substance: PRAVASTATIN
  9. PROCHLORPERAZINE [Concomitant]
     Active Substance: PROCHLORPERAZINE
  10. TRAMADOL [Concomitant]
     Active Substance: TRAMADOL
  11. VITAMIN D [Concomitant]
     Active Substance: VITAMIN D NOS
  12. TYLENOL [Concomitant]
     Active Substance: ACETAMINOPHEN

REACTIONS (3)
  - Blood pressure increased [None]
  - Headache [None]
  - Abdominal pain lower [None]

NARRATIVE: CASE EVENT DATE: 20230206
